FAERS Safety Report 25431826 (Version 2)
Quarter: 2025Q2

REPORT INFORMATION
  Report Type: Spontaneous
  Country: JP (occurrence: JP)
  Receive Date: 20250613
  Receipt Date: 20250619
  Transmission Date: 20250716
  Serious: Yes (Hospitalization, Other)
  Sender: EXELIXIS
  Company Number: JP-TAKEDA-2025TJP005586

PATIENT
  Age: 9 Decade
  Sex: Male

DRUGS (1)
  1. CABOMETYX [Suspect]
     Active Substance: CABOZANTINIB S-MALATE
     Indication: Renal cell carcinoma
     Dosage: 60 MG, QD
     Route: 048
     Dates: start: 20250508, end: 20250605

REACTIONS (2)
  - Somnolence [Not Recovered/Not Resolved]
  - Loss of consciousness [Recovered/Resolved]

NARRATIVE: CASE EVENT DATE: 20250605
